FAERS Safety Report 19413892 (Version 1)
Quarter: 2021Q2

REPORT INFORMATION
  Report Type: Spontaneous
  Country: GB (occurrence: GB)
  Receive Date: 20210614
  Receipt Date: 20210614
  Transmission Date: 20210717
  Serious: Yes (Other)
  Sender: FDA-Public Use
  Company Number: GB-TEVA-2021-GB-1921738

PATIENT
  Age: 35 Year
  Sex: Female
  Weight: 58 kg

DRUGS (8)
  1. DOXYCYCLINE. [Suspect]
     Active Substance: DOXYCYCLINE
     Indication: CHLAMYDIAL INFECTION
  2. CLENIL MODULITE [Concomitant]
     Active Substance: BECLOMETHASONE DIPROPIONATE
     Indication: ILL-DEFINED DISORDER
  3. METRONIDAZOL [Suspect]
     Active Substance: METRONIDAZOLE
     Indication: ABDOMINAL PAIN
  4. METRONIDAZOL [Suspect]
     Active Substance: METRONIDAZOLE
     Indication: CHLAMYDIAL INFECTION
  5. DOXYCYCLINE. [Suspect]
     Active Substance: DOXYCYCLINE
     Indication: ILL-DEFINED DISORDER
     Dosage: 100MG
     Route: 048
     Dates: start: 20210603
  6. METRONIDAZOL [Suspect]
     Active Substance: METRONIDAZOLE
     Indication: ILL-DEFINED DISORDER
     Dosage: 400MG
     Route: 048
     Dates: start: 20210603
  7. COCODAMOL [Concomitant]
     Active Substance: ACETAMINOPHEN\CODEINE PHOSPHATE
     Indication: ILL-DEFINED DISORDER
  8. SALBUTAMOL SULPHATE [Concomitant]
     Active Substance: ALBUTEROL SULFATE
     Indication: ILL-DEFINED DISORDER

REACTIONS (6)
  - Feeling abnormal [Not Recovered/Not Resolved]
  - Hyperaesthesia [Unknown]
  - Malaise [Not Recovered/Not Resolved]
  - Vision blurred [Not Recovered/Not Resolved]
  - Photophobia [Not Recovered/Not Resolved]
  - Paraesthesia [Not Recovered/Not Resolved]

NARRATIVE: CASE EVENT DATE: 20210604
